FAERS Safety Report 4599526-X (Version None)
Quarter: 2005Q1

REPORT INFORMATION
  Report Type: 
  Country: None (occurrence: None)
  Receive Date: 20050307
  Receipt Date: 20050224
  Transmission Date: 20050727
  Serious: Yes (Other)
  Sender: FDA-Public Use
  Company Number: US-JNJFOC-20050202009

PATIENT
  Sex: Male
  Weight: 59.88 kg

DRUGS (1)
  1. TOPAMAX [Suspect]
     Indication: TREMOR

REACTIONS (3)
  - CHEST PAIN [None]
  - HYPERHIDROSIS [None]
  - RESPIRATORY DISTRESS [None]
